FAERS Safety Report 18177337 (Version 1)
Quarter: 2020Q3

REPORT INFORMATION
  Report Type: Spontaneous
  Country: RO (occurrence: RO)
  Receive Date: 20200821
  Receipt Date: 20200821
  Transmission Date: 20201103
  Serious: Yes (Hospitalization)
  Sender: FDA-Public Use
  Company Number: RO-BAUSCH-BL-2020-023182

PATIENT
  Age: 45 Year
  Sex: Male

DRUGS (4)
  1. NORMIX [Suspect]
     Active Substance: RIFAXIMIN
     Indication: PRODUCT USED FOR UNKNOWN INDICATION
     Route: 048
     Dates: start: 2018
  2. CAFFEINE;MAGNESIUM SALICYLATE [Suspect]
     Active Substance: CAFFEINE\MAGNESIUM SALICYLATE
     Indication: PRODUCT USED FOR UNKNOWN INDICATION
     Dosage: DIUREX
     Route: 048
     Dates: start: 2018
  3. PROPRANOLOL [Suspect]
     Active Substance: PROPRANOLOL HYDROCHLORIDE
     Indication: PRODUCT USED FOR UNKNOWN INDICATION
     Route: 048
     Dates: start: 2018
  4. EMANERA [Suspect]
     Active Substance: ESOMEPRAZOLE MAGNESIUM
     Indication: PRODUCT USED FOR UNKNOWN INDICATION
     Route: 048
     Dates: start: 2018

REACTIONS (5)
  - Oedema peripheral [Unknown]
  - Jaundice [Unknown]
  - Abdominal distension [Unknown]
  - General physical health deterioration [Unknown]
  - Agitation [Unknown]

NARRATIVE: CASE EVENT DATE: 201910
